FAERS Safety Report 23940445 (Version 2)
Quarter: 2024Q2

REPORT INFORMATION
  Report Type: Spontaneous
  Country: ES (occurrence: ES)
  Receive Date: 20240605
  Receipt Date: 20240626
  Transmission Date: 20240716
  Serious: Yes (Death, Hospitalization, Other)
  Sender: FDA-Public Use
  Company Number: ES-ASTELLAS-2024US015833

PATIENT
  Sex: Female

DRUGS (1)
  1. ENFORTUMAB VEDOTIN [Suspect]
     Active Substance: ENFORTUMAB VEDOTIN
     Indication: Transitional cell carcinoma metastatic
     Dosage: 1.25 MG/KG, CYCLIC (1 COURSE WITH 3 DOSES ON DAY 1, 8 AND 15)
     Route: 042
     Dates: start: 20240321, end: 20240411

REACTIONS (6)
  - Toxic skin eruption [Fatal]
  - Rash maculo-papular [Recovered/Resolved]
  - Hyperglycaemia [Recovered/Resolved]
  - Febrile neutropenia [Unknown]
  - Mucosal inflammation [Unknown]
  - Hepatic failure [Unknown]

NARRATIVE: CASE EVENT DATE: 20240401
